FAERS Safety Report 9922312 (Version 1)
Quarter: 2014Q1

REPORT INFORMATION
  Report Type: Spontaneous
  Country: US (occurrence: None)
  Receive Date: 20140224
  Receipt Date: 20140224
  Transmission Date: 20141002
  Serious: Yes (Other)
  Sender: FDA-Public Use
  Company Number: None

PATIENT
  Age: 31 Year
  Sex: Female
  Weight: 63.5 kg

DRUGS (2)
  1. CITALOPRAM 20 MG [Suspect]
     Indication: DEPRESSION
     Route: 048
     Dates: start: 20140118, end: 20140211
  2. ORAL CONTRACEPTIVES [Concomitant]

REACTIONS (8)
  - Stress [None]
  - Depression [None]
  - Hypersomnia [None]
  - Feeling abnormal [None]
  - Drug ineffective [None]
  - Product substitution issue [None]
  - Withdrawal syndrome [None]
  - Product quality issue [None]
